FAERS Safety Report 12724150 (Version 1)
Quarter: 2016Q3

REPORT INFORMATION
  Report Type: Spontaneous
  Country: US (occurrence: US)
  Receive Date: 20160908
  Receipt Date: 20160908
  Transmission Date: 20161109
  Serious: No
  Sender: FDA-Public Use
  Company Number: US-DRREDDYS-USA/USA/16/0055968

PATIENT
  Sex: Male

DRUGS (1)
  1. ATORVASTATIN TABLETS 20 MG [Suspect]
     Active Substance: ATORVASTATIN
     Indication: BLOOD CHOLESTEROL ABNORMAL
     Route: 048

REACTIONS (2)
  - Product physical issue [Unknown]
  - No adverse event [Unknown]
